FAERS Safety Report 13732853 (Version 1)
Quarter: 2017Q3

REPORT INFORMATION
  Report Type: Spontaneous
  Country: FR (occurrence: FR)
  Receive Date: 20170707
  Receipt Date: 20170707
  Transmission Date: 20171127
  Serious: Yes (Death)
  Sender: FDA-Public Use
  Company Number: FR-SA-2017SA117151

PATIENT
  Age: 59 Year
  Sex: Male

DRUGS (26)
  1. ATARAX [Concomitant]
     Active Substance: HYDROXYZINE HYDROCHLORIDE
  2. CRESTOR [Concomitant]
     Active Substance: ROSUVASTATIN CALCIUM
  3. DELURSAN [Concomitant]
     Active Substance: URSODIOL
  4. LANTUS [Suspect]
     Active Substance: INSULIN GLARGINE
     Route: 058
     Dates: start: 20131226, end: 201404
  5. BACTRIM [Suspect]
     Active Substance: SULFAMETHOXAZOLE\TRIMETHOPRIM
     Route: 048
     Dates: start: 20131115, end: 20140602
  6. DECTANCYL [Suspect]
     Active Substance: DEXAMETHASONE
     Route: 048
     Dates: start: 20140309, end: 20140310
  7. FINASTERIDE. [Suspect]
     Active Substance: FINASTERIDE
     Dosage: STRENGTH- 5 MG
     Route: 048
     Dates: start: 20140219, end: 20140504
  8. OMEPRAZOLE. [Concomitant]
     Active Substance: OMEPRAZOLE
  9. CORTANCYL [Suspect]
     Active Substance: PREDNISONE
     Route: 048
     Dates: start: 201301, end: 201404
  10. PAROXETINE. [Suspect]
     Active Substance: PAROXETINE
     Dosage: STRENGTH- 20 MG
     Route: 048
     Dates: start: 20131113, end: 20140504
  11. DEROXAT [Concomitant]
     Active Substance: PAROXETINE HYDROCHLORIDE
  12. ZELITREX [Suspect]
     Active Substance: VALACYCLOVIR HYDROCHLORIDE
     Dosage: STRENGTH- 500 MG
     Route: 048
     Dates: start: 201312, end: 20140327
  13. ORACILLINE [Suspect]
     Active Substance: PENICILLIN V
     Dosage: STRENGTH- 1 000 000 IU
     Route: 048
     Dates: start: 20131113, end: 20140404
  14. ZOLPIDEM [Suspect]
     Active Substance: ZOLPIDEM\ZOLPIDEM TARTRATE
     Dosage: STRENGTH- 10 MG
     Route: 048
     Dates: start: 201311, end: 20140504
  15. DESFERAL [Suspect]
     Active Substance: DEFEROXAMINE MESYLATE
     Dosage: 5D/7
     Route: 058
     Dates: start: 20140222, end: 20140504
  16. ZOVIRAX [Concomitant]
     Active Substance: ACYCLOVIR
  17. TAREG [Concomitant]
     Active Substance: VALSARTAN
  18. ARANESP [Suspect]
     Active Substance: DARBEPOETIN ALFA
     Dosage: STRENGTH- 150 MCG
     Route: 058
     Dates: start: 20140221, end: 20140512
  19. DEROXAT [Concomitant]
     Active Substance: PAROXETINE HYDROCHLORIDE
  20. SPIRIVA [Concomitant]
     Active Substance: TIOTROPIUM BROMIDE MONOHYDRATE
  21. NEORAL [Suspect]
     Active Substance: CYCLOSPORINE
     Route: 048
     Dates: start: 20131022, end: 20140602
  22. INNOVAIR [Concomitant]
     Active Substance: BECLOMETHASONE DIPROPIONATE\FORMOTEROL
  23. XATRAL [Concomitant]
     Active Substance: ALFUZOSIN
  24. LOXEN [Concomitant]
     Active Substance: NICARDIPINE HYDROCHLORIDE
  25. IMOVANE [Concomitant]
     Active Substance: ZOPICLONE
  26. LEXOMIL [Concomitant]
     Active Substance: BROMAZEPAM

REACTIONS (1)
  - Encephalopathy [Fatal]

NARRATIVE: CASE EVENT DATE: 20140310
